FAERS Safety Report 4555696-0 (Version None)
Quarter: 2005Q1

REPORT INFORMATION
  Report Type: 
  Country: None (occurrence: None)
  Receive Date: 20050105
  Receipt Date: 20040920
  Transmission Date: 20050727
  Serious: No
  Sender: FDA-Public Use
  Company Number: SU-2004-002704

PATIENT
  Sex: Male

DRUGS (4)
  1. BENICAR HCT [Suspect]
     Indication: HYPERTENSION
     Dosage: 20.125 MG QD PO
     Route: 048
     Dates: start: 20040101
  2. CATAPRES [Concomitant]
  3. EFFEXOR [Concomitant]
  4. ACIPHEX [Concomitant]

REACTIONS (1)
  - PARAESTHESIA [None]
